FAERS Safety Report 10409934 (Version 1)
Quarter: 2014Q3

REPORT INFORMATION
  Report Type: Spontaneous
  Country: US (occurrence: None)
  Receive Date: 20140825
  Receipt Date: 20140825
  Transmission Date: 20150326
  Serious: Yes (Other)
  Sender: FDA-Public Use
  Company Number: None

PATIENT
  Age: 63 Year
  Sex: Female
  Weight: 71.67 kg

DRUGS (2)
  1. METHYLPREDNISOLONE TABLETS 4 MG PAK QUALITEST PHARMACEUTICALS [Suspect]
     Active Substance: METHYLPREDNISOLONE
     Indication: SWELLING
     Dosage: 2 PILLS BEFORE BREAKFAST?FOUR TIMES DAILY?TAKEN BY MOUTH
     Route: 048
     Dates: start: 20140724, end: 20140724
  2. METHYLPREDNISOLONE TABLETS 4 MG PAK QUALITEST PHARMACEUTICALS [Suspect]
     Active Substance: METHYLPREDNISOLONE
     Indication: TOOTH INFECTION
     Dosage: 2 PILLS BEFORE BREAKFAST?FOUR TIMES DAILY?TAKEN BY MOUTH
     Route: 048
     Dates: start: 20140724, end: 20140724

REACTIONS (4)
  - Blood glucose increased [None]
  - Dyspnoea [None]
  - Chest discomfort [None]
  - Blood pressure increased [None]

NARRATIVE: CASE EVENT DATE: 20140724
